FAERS Safety Report 5218254-0 (Version None)
Quarter: 2007Q1

REPORT INFORMATION
  Report Type: 
  Country: None (occurrence: None)
  Receive Date: 20061130
  Receipt Date: 20060518
  Transmission Date: 20070707
  Serious: Yes (Other)
  Sender: FDA-Public Use
  Company Number: US200605004860

PATIENT
  Sex: Female

DRUGS (1)
  1. ZYPREXA [Suspect]
     Dates: start: 20000101, end: 20040101

REACTIONS (4)
  - CONVULSION [None]
  - DIABETES MELLITUS NON-INSULIN-DEPENDENT [None]
  - DIABETIC COMA [None]
  - TARDIVE DYSKINESIA [None]
